FAERS Safety Report 8336030-7 (Version None)
Quarter: 2012Q2

REPORT INFORMATION
  Report Type: 
  Country: None (occurrence: None)
  Receive Date: 20120501
  Receipt Date: 20120501
  Transmission Date: 20120825
  Serious: Yes (Hospitalization)
  Sender: FDA-Public Use
  Company Number: None

PATIENT
  Age: 56 Year
  Sex: Male
  Weight: 117.9 kg

DRUGS (5)
  1. MICARDIS [Suspect]
     Indication: HYPERTENSION
     Dosage: 80MG DAILY PO CHRONIC
     Route: 048
  2. NAPROXEN (ALEVE) [Suspect]
     Indication: ARTHRITIS
     Dosage: 2-3 TIMES DAILY PO RECENT
     Route: 048
  3. PLAQUENIL [Concomitant]
  4. VYTORIN [Concomitant]
  5. ACIPHEX [Concomitant]

REACTIONS (4)
  - RENAL FAILURE ACUTE [None]
  - ULCER [None]
  - ACUTE PRERENAL FAILURE [None]
  - GASTROINTESTINAL HAEMORRHAGE [None]
